FAERS Safety Report 20616362 (Version 1)
Quarter: 2022Q1

REPORT INFORMATION
  Report Type: Spontaneous
  Country: US (occurrence: US)
  Receive Date: 20220321
  Receipt Date: 20220321
  Transmission Date: 20220424
  Serious: Yes (Death)
  Sender: FDA-Public Use
  Company Number: US-ELI_LILLY_AND_COMPANY-US202203007577

PATIENT
  Sex: Male

DRUGS (4)
  1. HUMALOG [Suspect]
     Active Substance: INSULIN LISPRO
     Indication: Diabetes mellitus
     Dosage: UNK UNK, UNKNOWN
     Route: 065
     Dates: start: 2021
  2. SEGLUROMET [Concomitant]
     Active Substance: ERTUGLIFLOZIN PIDOLATE\METFORMIN HYDROCHLORIDE
     Dosage: 1000 MG
  3. GLIPIZIDE [Concomitant]
     Active Substance: GLIPIZIDE
     Indication: Diabetes mellitus
     Dosage: 10 MG
  4. LISINOPRIL [Concomitant]
     Active Substance: LISINOPRIL
     Dosage: 25 MG

REACTIONS (2)
  - Myocardial infarction [Fatal]
  - Hypertension [Unknown]
